FAERS Safety Report 9674607 (Version 2)
Quarter: 2013Q4

REPORT INFORMATION
  Report Type: Spontaneous
  Country: CH (occurrence: CH)
  Receive Date: 20131107
  Receipt Date: 20131107
  Transmission Date: 20140711
  Serious: Yes (Other)
  Sender: FDA-Public Use
  Company Number: CH-AMGEN-CHESP2013059046

PATIENT
  Age: 30 Year
  Sex: Female
  Weight: 60 kg

DRUGS (4)
  1. ENBREL [Suspect]
     Indication: PSORIASIS
     Dosage: 50 MG, WEEKLY
     Route: 058
     Dates: start: 20120712
  2. ENBREL [Suspect]
     Indication: PSORIATIC ARTHROPATHY
     Dosage: UNK
     Route: 065
  3. IBUPROFEN [Concomitant]
     Dosage: TWICE PER WEEK (ALSO REPORTED AS OFTEN)
     Route: 048
  4. GYSELLE [Concomitant]
     Dosage: UNK, ONCE DAILY
     Route: 048
     Dates: start: 2011

REACTIONS (2)
  - Injection site plaque [Recovered/Resolved]
  - Injection site urticaria [Recovered/Resolved]
